FAERS Safety Report 9254432 (Version 1)
Quarter: 2013Q2

REPORT INFORMATION
  Report Type: Spontaneous
  Country: US (occurrence: US)
  Receive Date: 20130425
  Receipt Date: 20130425
  Transmission Date: 20140414
  Serious: No
  Sender: FDA-Public Use
  Company Number: US-PFIZER INC-2013128408

PATIENT
  Sex: 0

DRUGS (1)
  1. LYRICA [Suspect]
     Dosage: 100 MG, UNK (GOT 90 CASPSALS AND ONLY TOOK 2 OF THEM)

REACTIONS (3)
  - Malaise [Unknown]
  - Dizziness [Unknown]
  - Gait disturbance [Unknown]
